FAERS Safety Report 8337840-2 (Version None)
Quarter: 2012Q2

REPORT INFORMATION
  Report Type: 
  Country: None (occurrence: None)
  Receive Date: 20120504
  Receipt Date: 20120424
  Transmission Date: 20120825
  Serious: Yes (Hospitalization, Other)
  Sender: FDA-Public Use
  Company Number: US-ELI_LILLY_AND_COMPANY-US201204000459

PATIENT
  Sex: Female

DRUGS (1)
  1. FORTEO [Suspect]
     Indication: OSTEOPOROSIS
     Dosage: 20 UG, QD
     Route: 058
     Dates: end: 20120316

REACTIONS (5)
  - PNEUMONIA [None]
  - DYSPNOEA [None]
  - ASTHENIA [None]
  - CORONARY ARTERY OCCLUSION [None]
  - RESPIRATORY DISORDER [None]
